FAERS Safety Report 11933453 (Version 1)
Quarter: 2016Q1

REPORT INFORMATION
  Report Type: Spontaneous
  Country: US (occurrence: US)
  Receive Date: 20160121
  Receipt Date: 20160121
  Transmission Date: 20160526
  Serious: No
  Sender: FDA-Public Use
  Company Number: US-TEVA-540685USA

PATIENT
  Sex: Female

DRUGS (1)
  1. MIRTAZAPINE. [Suspect]
     Active Substance: MIRTAZAPINE
     Indication: MAJOR DEPRESSION
     Dates: start: 20141015, end: 20150115

REACTIONS (3)
  - Irritability [Unknown]
  - Aggression [Unknown]
  - Anger [Unknown]
